FAERS Safety Report 5909331-7 (Version None)
Quarter: 2008Q4

REPORT INFORMATION
  Report Type: 
  Country: None (occurrence: None)
  Receive Date: 20081002
  Receipt Date: 20080917
  Transmission Date: 20090506
  Serious: Yes (Death, Congenital Anomaly)
  Sender: FDA-Public Use
  Company Number: TNZIE200800109

PATIENT
  Sex: Male
  Weight: 2.95 kg

DRUGS (8)
  1. INNOHEP [Suspect]
     Indication: PROPHYLAXIS
     Dosage: (3500 IU,DAILY), SUBCUTANEOUS
     Route: 058
     Dates: start: 20060820, end: 20070326
  2. ASPIRIN [Concomitant]
  3. CEPHRADINE [Concomitant]
  4. ACETAMINOPHEN [Concomitant]
  5. MEPERIDINE HCL [Concomitant]
  6. PHENERGAN (PROMETHAZINE) [Concomitant]
  7. VELOSEF (CEFRADINE) [Concomitant]
  8. DEXAMETHASONE TAB [Concomitant]

REACTIONS (9)
  - CRYING [None]
  - FEEDING DISORDER NEONATAL [None]
  - MATERNAL DRUGS AFFECTING FOETUS [None]
  - METABOLIC DISORDER [None]
  - MITOCHONDRIAL MYOPATHY [None]
  - NEONATAL DISORDER [None]
  - NEONATAL RESPIRATORY DISTRESS SYNDROME [None]
  - PREMATURE BABY [None]
  - SUDDEN INFANT DEATH SYNDROME [None]
